FAERS Safety Report 18559123 (Version 1)
Quarter: 2020Q4

REPORT INFORMATION
  Report Type: Spontaneous
  Country: US (occurrence: US)
  Receive Date: 20201127
  Receipt Date: 20201127
  Transmission Date: 20210114
  Serious: Yes (Other)
  Sender: FDA-Public Use
  Company Number: None

PATIENT
  Age: 63 Year
  Sex: Female

DRUGS (8)
  1. TYLENOL [Concomitant]
     Active Substance: ACETAMINOPHEN
  2. PANTOPRAZOLE SOD DR 40MG TAB [Suspect]
     Active Substance: PANTOPRAZOLE SODIUM
     Indication: GASTROOESOPHAGEAL REFLUX DISEASE
     Dosage: ?          QUANTITY:1 TABLET(S);?
     Route: 048
     Dates: start: 20161101, end: 20201127
  3. CLONAZEPAM. [Concomitant]
     Active Substance: CLONAZEPAM
  4. VITAMIN D [Concomitant]
     Active Substance: VITAMIN D NOS
  5. SIMVISTATIN [Concomitant]
     Active Substance: SIMVASTATIN
  6. CENTRUM SILVER MULTIVITAMIN [Concomitant]
  7. SERTRALINE [Concomitant]
     Active Substance: SERTRALINE HYDROCHLORIDE
  8. IBUFROPHIN [Concomitant]

REACTIONS (2)
  - Arthralgia [None]
  - Pain [None]

NARRATIVE: CASE EVENT DATE: 20201124
